FAERS Safety Report 9204510 (Version 1)
Quarter: 2013Q1

REPORT INFORMATION
  Report Type: Spontaneous
  Country: CA (occurrence: None)
  Receive Date: 20130329
  Receipt Date: 20130329
  Transmission Date: 20140127
  Serious: Yes (Other)
  Sender: FDA-Public Use
  Company Number: 2013-099

PATIENT
  Age: 28 Year
  Sex: Female

DRUGS (1)
  1. CLOZAPINE [Suspect]
     Route: 048

REACTIONS (7)
  - Antipsychotic drug level increased [None]
  - Sedation [None]
  - Confusional state [None]
  - Pupillary reflex impaired [None]
  - Mydriasis [None]
  - Delirium [None]
  - Tobacco user [None]
